FAERS Safety Report 14566947 (Version 1)
Quarter: 2018Q1

REPORT INFORMATION
  Report Type: Spontaneous
  Country: RU (occurrence: RU)
  Receive Date: 20180223
  Receipt Date: 20180223
  Transmission Date: 20180509
  Serious: Yes (Other)
  Sender: FDA-Public Use
  Company Number: RU-ASTRAZENECA-2018SE22548

PATIENT
  Age: 70 Year
  Sex: Female
  Weight: 101 kg

DRUGS (3)
  1. AMLODIPINE [Concomitant]
     Active Substance: AMLODIPINE BESYLATE
  2. CARDOSAL [Concomitant]
  3. FORXIGA [Suspect]
     Active Substance: DAPAGLIFLOZIN
     Indication: TYPE 2 DIABETES MELLITUS
     Route: 048
     Dates: start: 201706, end: 20180207

REACTIONS (3)
  - Blood pressure increased [Recovered/Resolved]
  - Back pain [Not Recovered/Not Resolved]
  - Bladder discomfort [Recovered/Resolved]

NARRATIVE: CASE EVENT DATE: 20180207
